FAERS Safety Report 5722378-9 (Version None)
Quarter: 2008Q2

REPORT INFORMATION
  Report Type: 
  Country: None (occurrence: None)
  Receive Date: 20080429
  Receipt Date: 20071127
  Transmission Date: 20081010
  Serious: No
  Sender: FDA-Public Use
  Company Number: US-ASTRAZENECA-2007UW27125

PATIENT
  Age: 76 Year
  Sex: Female
  Weight: 54.4 kg

DRUGS (1)
  1. NEXIUM [Suspect]
     Indication: GASTROOESOPHAGEAL REFLUX DISEASE
     Route: 048
     Dates: start: 20071101

REACTIONS (3)
  - FEELING ABNORMAL [None]
  - FEELING HOT [None]
  - FLUSHING [None]
